FAERS Safety Report 7250337-6 (Version None)
Quarter: 2011Q1

REPORT INFORMATION
  Report Type: 
  Country: None (occurrence: None)
  Receive Date: 20110128
  Receipt Date: 20110119
  Transmission Date: 20110831
  Serious: Yes (Other)
  Sender: FDA-Public Use
  Company Number: US-ASTRAZENECA-2011SE03387

PATIENT
  Age: 60 Year
  Sex: Male

DRUGS (7)
  1. SEROQUEL [Suspect]
     Indication: INSOMNIA
     Route: 048
     Dates: start: 20080101, end: 20101230
  2. OXYCODONE HCL [Concomitant]
     Dates: start: 20101230
  3. TYLENOL-500 [Concomitant]
     Dates: start: 20101230
  4. PHENOBARBITAL [Concomitant]
  5. TAMSULOSIN HCL [Concomitant]
  6. APAP BUTABITAL [Concomitant]
  7. MUSCLE RELAXER [Concomitant]
     Dates: start: 20101230

REACTIONS (4)
  - ANTISOCIAL BEHAVIOUR [None]
  - FEAR [None]
  - IMPRISONMENT [None]
  - MEMORY IMPAIRMENT [None]
